FAERS Safety Report 24064413 (Version 1)
Quarter: 2024Q3

REPORT INFORMATION
  Report Type: Spontaneous
  Country: GB (occurrence: GB)
  Receive Date: 20240709
  Receipt Date: 20240709
  Transmission Date: 20241016
  Serious: Yes (Other)
  Sender: ORGANON
  Company Number: None

PATIENT
  Age: 69 Year

DRUGS (1)
  1. EZETIMIBE [Suspect]
     Active Substance: EZETIMIBE
     Dosage: 10 MG ONE DAILY
     Dates: start: 20240423, end: 20240502

REACTIONS (2)
  - Fatigue [Not Recovered/Not Resolved]
  - Medication error [Unknown]

NARRATIVE: CASE EVENT DATE: 20240430
